FAERS Safety Report 12602556 (Version 1)
Quarter: 2016Q3

REPORT INFORMATION
  Report Type: Spontaneous
  Country: RS (occurrence: RS)
  Receive Date: 20160728
  Receipt Date: 20160728
  Transmission Date: 20161109
  Serious: Yes (Other)
  Sender: FDA-Public Use
  Company Number: PHHY2016RS101253

PATIENT
  Age: 64 Year
  Sex: Female

DRUGS (1)
  1. GLEEVEC [Suspect]
     Active Substance: IMATINIB MESYLATE
     Indication: CHRONIC MYELOID LEUKAEMIA
     Dosage: 400 MG, QD
     Route: 065

REACTIONS (6)
  - Lymphocytosis [Unknown]
  - Second primary malignancy [Unknown]
  - Chronic lymphocytic leukaemia [Unknown]
  - Muscle spasms [Unknown]
  - Leukocytosis [Unknown]
  - Conjunctivitis [Unknown]
